FAERS Safety Report 17052015 (Version 1)
Quarter: 2019Q4

REPORT INFORMATION
  Report Type: Report from Study
  Country: CA (occurrence: CA)
  Receive Date: 20191120
  Receipt Date: 20191120
  Transmission Date: 20200122
  Serious: Yes (Hospitalization, Other)
  Sender: FDA-Public Use
  Company Number: CA-BRISTOL-MYERS SQUIBB COMPANY-BMS-2019-101961

PATIENT
  Age: 87 Year
  Sex: Female

DRUGS (1)
  1. ABATACEPT [Suspect]
     Active Substance: ABATACEPT
     Indication: RHEUMATOID ARTHRITIS
     Dosage: 500 MILLIGRAM, Q4WK
     Route: 042
     Dates: start: 20130515

REACTIONS (6)
  - Perineal disorder [Unknown]
  - Duodenal perforation [Unknown]
  - Asthenia [Unknown]
  - Intestinal perforation [Unknown]
  - Abscess [Unknown]
  - Abdominal infection [Recovering/Resolving]

NARRATIVE: CASE EVENT DATE: 20191021
